FAERS Safety Report 18264033 (Version 4)
Quarter: 2020Q4

REPORT INFORMATION
  Report Type: Spontaneous
  Country: US (occurrence: US)
  Receive Date: 20200914
  Receipt Date: 20201020
  Transmission Date: 20210113
  Serious: Yes (Other)
  Sender: FDA-Public Use
  Company Number: US-PFIZER INC-2020340093

PATIENT
  Age: 40 Year
  Sex: Male
  Weight: 58.97 kg

DRUGS (4)
  1. GENOTROPIN [Suspect]
     Active Substance: SOMATROPIN
     Indication: MULTIPLE SCLEROSIS
  2. GENOTROPIN MQ [Suspect]
     Active Substance: SOMATROPIN
     Indication: MULTIPLE SCLEROSIS
  3. GENOTROPIN MQ [Suspect]
     Active Substance: SOMATROPIN
     Indication: ADDISON^S DISEASE
     Dosage: UNK
  4. GENOTROPIN [Suspect]
     Active Substance: SOMATROPIN
     Indication: ADDISON^S DISEASE
     Dosage: 0.4 MG
     Dates: start: 202007

REACTIONS (3)
  - Product use in unapproved indication [Unknown]
  - Off label use [Unknown]
  - Dysuria [Unknown]
